FAERS Safety Report 7612265-3 (Version None)
Quarter: 2011Q3

REPORT INFORMATION
  Report Type: 
  Country: None (occurrence: None)
  Receive Date: 20110715
  Receipt Date: 20110713
  Transmission Date: 20111222
  Serious: Yes (Death)
  Sender: FDA-Public Use
  Company Number: PHHY2011AU29287

PATIENT
  Sex: Female
  Weight: 54 kg

DRUGS (16)
  1. VENTOLIN [Concomitant]
     Dosage: 1 DF, QID
  2. CIPROFLOXACIN HCL [Concomitant]
     Dosage: 500 MG, QD
     Route: 048
  3. POLY-TEARS [Concomitant]
     Dosage: 2 DRP, QID
  4. ONBREZ [Suspect]
     Indication: CHRONIC OBSTRUCTIVE PULMONARY DISEASE
     Dosage: UNK UKN, UNK
     Dates: start: 20101122
  5. AIROMIR [Concomitant]
     Dosage: 2 DF, QID
  6. PANAMAX [Concomitant]
     Dosage: 2 DF, TID
     Route: 048
  7. SPIRACTIN [Concomitant]
     Dosage: 1 MANE
     Route: 048
  8. ATROVENT [Concomitant]
     Dosage: 2 DF, QID
  9. VENTOLIN HFA [Concomitant]
     Dosage: 1 DF, QID
  10. ASPIRIN [Concomitant]
     Dosage: 100 MG, QD
     Route: 048
  11. PROTOS [Concomitant]
     Dosage: 2 G, QD
     Route: 048
  12. BETAMETHASONE VALERATE [Concomitant]
     Dosage: 2 TO 3 TIMES, QD
     Route: 061
  13. FRUSID [Concomitant]
     Dosage: 20 MG, MANE 1 MANE AND 1 AT LUNCH
     Route: 048
  14. MOBIC [Concomitant]
     Dosage: 15 MG, QD
     Route: 048
  15. PULMICORT [Concomitant]
     Dosage: 1 MANE
  16. ATROVENT [Concomitant]
     Dosage: UNK UKN, UNK

REACTIONS (2)
  - ACUTE RESPIRATORY FAILURE [None]
  - DYSPNOEA [None]
